FAERS Safety Report 15744460 (Version 1)
Quarter: 2018Q4

REPORT INFORMATION
  Report Type: Spontaneous
  Country: US (occurrence: US)
  Receive Date: 20181205
  Receipt Date: 20181205
  Transmission Date: 20190205
  Serious: Yes (Death, Hospitalization)
  Sender: FDA-Public Use
  Company Number: None

PATIENT
  Age: 66 Year
  Sex: Female

DRUGS (12)
  1. OPSUMIT [Suspect]
     Active Substance: MACITENTAN
     Indication: PULMONARY ARTERIAL HYPERTENSION
     Route: 048
     Dates: start: 201510, end: 201809
  2. SILDENAFIL. [Concomitant]
     Active Substance: SILDENAFIL
  3. HYDROXYCHLOROQUINE [Suspect]
     Active Substance: HYDROXYCHLOROQUINE
  4. FUROSEMIDE. [Concomitant]
     Active Substance: FUROSEMIDE
  5. DULERA [Concomitant]
     Active Substance: FORMOTEROL FUMARATE DIHYDRATE\MOMETASONE FUROATE
  6. PERCOCET [Suspect]
     Active Substance: ACETAMINOPHEN\OXYCODONE HYDROCHLORIDE
  7. SERTRALINE [Concomitant]
     Active Substance: SERTRALINE HYDROCHLORIDE
  8. SPIRONOLACTONE. [Concomitant]
     Active Substance: SPIRONOLACTONE
  9. ALBUTEROL. [Concomitant]
     Active Substance: ALBUTEROL
  10. HYDROXYCHLOROQUINE [Concomitant]
     Active Substance: HYDROXYCHLOROQUINE
  11. LIDOCAINE TOP CREAM [Concomitant]
  12. FLUOCINONIDE TOP [Concomitant]

REACTIONS (3)
  - Pulmonary hypertension [None]
  - Respiratory distress [None]
  - Cardio-respiratory arrest [None]

NARRATIVE: CASE EVENT DATE: 20180930
